FAERS Safety Report 10646961 (Version 2)
Quarter: 2015Q1

REPORT INFORMATION
  Report Type: Spontaneous
  Country: RU (occurrence: RU)
  Receive Date: 20141211
  Receipt Date: 20150213
  Transmission Date: 20150720
  Serious: Yes (Hospitalization, Other)
  Sender: FDA-Public Use
  Company Number: RU-ABBVIE-14P-251-1317925-00

PATIENT
  Sex: Male
  Weight: 76 kg

DRUGS (7)
  1. LINEX [Concomitant]
     Indication: HIV INFECTION
  2. RIFAMPICIN [Concomitant]
     Active Substance: RIFAMPIN
     Indication: HIV INFECTION
     Route: 048
  3. COMBIVIR [Suspect]
     Active Substance: LAMIVUDINE\ZIDOVUDINE
     Indication: HIV INFECTION
     Route: 065
  4. KALETRA [Suspect]
     Active Substance: LOPINAVIR\RITONAVIR
     Indication: HIV INFECTION
     Route: 065
  5. FLUCONAZOLE. [Concomitant]
     Active Substance: FLUCONAZOLE
     Indication: HIV INFECTION
  6. VITAMINS [Concomitant]
     Active Substance: VITAMINS
     Indication: HIV INFECTION
  7. CEFAZOLIN [Concomitant]
     Active Substance: CEFAZOLIN
     Indication: HIV INFECTION
     Route: 050

REACTIONS (5)
  - Lymphadenitis bacterial [Not Recovered/Not Resolved]
  - Oesophageal candidiasis [Unknown]
  - Pneumonia [Unknown]
  - Oral candidiasis [Not Recovered/Not Resolved]
  - Weight decreased [Unknown]
